FAERS Safety Report 21613199 (Version 2)
Quarter: 2022Q4

REPORT INFORMATION
  Report Type: Report from Study
  Country: GB (occurrence: GB)
  Receive Date: 20221118
  Receipt Date: 20221205
  Transmission Date: 20230113
  Serious: Yes (Other)
  Sender: FDA-Public Use
  Company Number: GB-BRISTOL-MYERS SQUIBB COMPANY-2022-132198

PATIENT
  Age: 74 Year
  Sex: Male

DRUGS (5)
  1. DEXAMETHASONE [Suspect]
     Active Substance: DEXAMETHASONE
     Indication: Plasma cell myeloma refractory
     Dosage: UNIT DOSE : 10 MG, THERAPY END DATE : NOT ASKED
     Route: 048
     Dates: start: 20200110
  2. DEXAMETHASONE [Suspect]
     Active Substance: DEXAMETHASONE
     Dosage: UNIT DOSE : 10 MG, THERAPY END DATE : NOT ASKED
     Route: 048
     Dates: start: 20200124
  3. DEXAMETHASONE [Suspect]
     Active Substance: DEXAMETHASONE
     Dosage: UNIT DOSE : 10 MG, THERAPY END DATE : NOT ASKED
     Route: 048
     Dates: start: 20200117
  4. DEXAMETHASONE [Suspect]
     Active Substance: DEXAMETHASONE
     Dosage: UNIT DOSE : 10 MG, THERAPY END DATE : NOT ASKED
     Route: 048
     Dates: start: 20200103
  5. POMALIDOMIDE [Suspect]
     Active Substance: POMALIDOMIDE
     Indication: Plasma cell myeloma refractory
     Dosage: UNIT DOSE : 3 MG, THERAPY DURATION : 21 DAYS
     Route: 065
     Dates: start: 20200102, end: 20200122

REACTIONS (2)
  - Neutropenia [Unknown]
  - Leukopenia [Recovered/Resolved]

NARRATIVE: CASE EVENT DATE: 20200102
